FAERS Safety Report 4576718-7 (Version None)
Quarter: 2005Q1

REPORT INFORMATION
  Report Type: 
  Country: None (occurrence: None)
  Receive Date: 20050210
  Receipt Date: 20050104
  Transmission Date: 20050727
  Serious: Yes (Hospitalization)
  Sender: FDA-Public Use
  Company Number: 200510045FR

PATIENT
  Age: 56 Year
  Sex: Female

DRUGS (7)
  1. FLAGYL [Suspect]
     Indication: FASCIITIS
     Route: 048
     Dates: start: 20040810, end: 20040812
  2. PYOSTACINE [Suspect]
     Indication: SUPERINFECTION
     Route: 048
     Dates: start: 20040705, end: 20040805
  3. OFLOCET [Suspect]
     Indication: FASCIITIS
     Route: 048
     Dates: start: 20040810, end: 20040812
  4. DALACINE [Suspect]
     Indication: SUPERINFECTION
     Route: 048
     Dates: start: 20040805, end: 20040810
  5. AUGMENTIN '125' [Suspect]
     Route: 048
  6. FOSFOMYCINE SODIQUE [Suspect]
     Dates: start: 20040829, end: 20040831
  7. RIFAMPICIN [Suspect]
     Dates: start: 20040829, end: 20040902

REACTIONS (4)
  - DERMATITIS BULLOUS [None]
  - HYPERTHERMIA [None]
  - NIKOLSKY'S SIGN [None]
  - TOXIC SKIN ERUPTION [None]
